FAERS Safety Report 15438102 (Version 2)
Quarter: 2018Q4

REPORT INFORMATION
  Report Type: Report from Study
  Country: US (occurrence: US)
  Receive Date: 20180928
  Receipt Date: 20181005
  Transmission Date: 20190204
  Serious: Yes (Life-Threatening, Hospitalization, Other)
  Sender: FDA-Public Use
  Company Number: PHHY2018US109103

PATIENT
  Age: 16 Year
  Sex: Male

DRUGS (3)
  1. ILARIS [Suspect]
     Active Substance: CANAKINUMAB
     Dosage: 300 MG, UNK
     Route: 058
     Dates: start: 20180702
  2. ILARIS [Suspect]
     Active Substance: CANAKINUMAB
     Indication: STILL^S DISEASE
     Dosage: 300 MG, Q4W
     Route: 058
     Dates: start: 201706
  3. ILARIS [Suspect]
     Active Substance: CANAKINUMAB
     Indication: CRYOPYRIN ASSOCIATED PERIODIC SYNDROME
     Dosage: 300 MG, UNK
     Route: 058

REACTIONS (5)
  - Abdominal pain upper [Unknown]
  - Malaise [Unknown]
  - Blood sodium abnormal [Unknown]
  - Inappropriate schedule of product administration [Unknown]
  - Perforated ulcer [Not Recovered/Not Resolved]

NARRATIVE: CASE EVENT DATE: 20180916
